FAERS Safety Report 5446600-1 (Version None)
Quarter: 2007Q3

REPORT INFORMATION
  Report Type: 
  Country: None (occurrence: None)
  Receive Date: 20070907
  Receipt Date: 20070906
  Transmission Date: 20080115
  Serious: Yes (Other)
  Sender: FDA-Public Use
  Company Number: A0679296A

PATIENT
  Age: 2 Year
  Sex: Male

DRUGS (1)
  1. TUMS [Suspect]
     Dosage: 20TAB SINGLE DOSE
     Route: 048
     Dates: start: 20070905, end: 20070905

REACTIONS (2)
  - ACCIDENTAL EXPOSURE [None]
  - CONVULSION [None]
